FAERS Safety Report 20831573 (Version 1)
Quarter: 2022Q2

REPORT INFORMATION
  Report Type: Spontaneous
  Country: TW (occurrence: TW)
  Receive Date: 20220516
  Receipt Date: 20220516
  Transmission Date: 20220721
  Serious: Yes (Life-Threatening, Hospitalization, Other)
  Sender: FDA-Public Use
  Company Number: TW-LUPIN PHARMACEUTICALS INC.-2022-06949

PATIENT
  Age: 58 Year
  Sex: Male

DRUGS (10)
  1. METHYLPREDNISOLONE [Suspect]
     Active Substance: METHYLPREDNISOLONE
     Indication: Immunosuppressant drug therapy
     Dosage: 4 MG, QD
     Route: 065
  2. METHYLPREDNISOLONE [Suspect]
     Active Substance: METHYLPREDNISOLONE
     Indication: Prophylaxis against transplant rejection
  3. TACROLIMUS [Suspect]
     Active Substance: TACROLIMUS
     Indication: Immunosuppressant drug therapy
     Dosage: UNK
     Route: 065
  4. TACROLIMUS [Suspect]
     Active Substance: TACROLIMUS
     Indication: Prophylaxis against transplant rejection
  5. MYCOPHENOLIC ACID [Suspect]
     Active Substance: MYCOPHENOLIC ACID
     Indication: Immunosuppressant drug therapy
     Dosage: UNK
     Route: 065
  6. MYCOPHENOLIC ACID [Suspect]
     Active Substance: MYCOPHENOLIC ACID
     Indication: Prophylaxis against transplant rejection
  7. EVEROLIMUS [Concomitant]
     Active Substance: EVEROLIMUS
     Indication: Clear cell renal cell carcinoma
     Dosage: 1 MG, QD
     Route: 065
     Dates: end: 202004
  8. EVEROLIMUS [Concomitant]
     Active Substance: EVEROLIMUS
     Indication: Complications of transplanted kidney
     Dosage: 5 MG, QD
     Route: 065
     Dates: start: 202004
  9. SUNITINIB [Concomitant]
     Active Substance: SUNITINIB
     Indication: Clear cell renal cell carcinoma
     Dosage: 50 MG, QD 3 WEEKS ON AND 1 WEEK OFF
     Route: 065
     Dates: start: 201911
  10. SUNITINIB [Concomitant]
     Active Substance: SUNITINIB
     Dosage: 25 MG, QD 3 WEEKS ON AND 1 WEEK OFF
     Route: 065
     Dates: end: 202004

REACTIONS (2)
  - Drug ineffective for unapproved indication [Unknown]
  - Off label use [Unknown]
